FAERS Safety Report 12175199 (Version 4)
Quarter: 2016Q2

REPORT INFORMATION
  Report Type: Spontaneous
  Country: SE (occurrence: SE)
  Receive Date: 20160314
  Receipt Date: 20160610
  Transmission Date: 20160815
  Serious: Yes (Hospitalization, Other)
  Sender: FDA-Public Use
  Company Number: SE-ELI_LILLY_AND_COMPANY-SE201603001823

PATIENT
  Age: 57 Year
  Sex: Female

DRUGS (2)
  1. ALIMTA [Suspect]
     Active Substance: PEMETREXED DISODIUM
     Indication: LUNG NEOPLASM MALIGNANT
     Dosage: UNK UNK, UNKNOWN
     Route: 065
  2. CISPLATIN. [Suspect]
     Active Substance: CISPLATIN
     Indication: LUNG NEOPLASM MALIGNANT
     Dosage: UNK, UNKNOWN
     Route: 042

REACTIONS (11)
  - Ear pain [Not Recovered/Not Resolved]
  - Tremor [Unknown]
  - Erythema [Unknown]
  - Hypertension [Unknown]
  - Eye swelling [Unknown]
  - Oedema [Unknown]
  - Balance disorder [Recovered/Resolved with Sequelae]
  - Ear disorder [Unknown]
  - Tinnitus [Unknown]
  - Haemoglobin increased [Unknown]
  - Visual acuity reduced [Unknown]

NARRATIVE: CASE EVENT DATE: 20160310
